FAERS Safety Report 4819091-9 (Version None)
Quarter: 2005Q4

REPORT INFORMATION
  Report Type: 
  Country: None (occurrence: None)
  Receive Date: 20051103
  Receipt Date: 20050524
  Transmission Date: 20060501
  Serious: Yes (Congenital Anomaly, Other)
  Sender: FDA-Public Use
  Company Number: 2005SE03151

PATIENT
  Age: 391 Month
  Sex: Female

DRUGS (2)
  1. ZOLADEX [Suspect]
     Indication: ENDOMETRIOSIS
     Route: 058
     Dates: start: 20050420
  2. NUZAK [Concomitant]
     Route: 048
     Dates: end: 20050516

REACTIONS (5)
  - ABORTION INDUCED [None]
  - ANORECTAL DISORDER [None]
  - CONGENITAL CYSTIC KIDNEY DISEASE [None]
  - DRUG EXPOSURE DURING PREGNANCY [None]
  - INTRA-UTERINE DEATH [None]
